FAERS Safety Report 20372525 (Version 2)
Quarter: 2022Q1

REPORT INFORMATION
  Report Type: Spontaneous
  Country: PL (occurrence: PL)
  Receive Date: 20220125
  Receipt Date: 20220203
  Transmission Date: 20220423
  Serious: Yes (Other)
  Sender: FDA-Public Use
  Company Number: PL-CELLTRION INC.-2022PL000707

PATIENT

DRUGS (1)
  1. INFLIXIMAB [Suspect]
     Active Substance: INFLIXIMAB
     Indication: Birdshot chorioretinopathy
     Dosage: UNK
     Route: 065

REACTIONS (4)
  - Choroidal neovascularisation [Recovering/Resolving]
  - Retinoschisis [Recovering/Resolving]
  - Visual acuity reduced [Unknown]
  - Off label use [Unknown]
